FAERS Safety Report 24076024 (Version 1)
Quarter: 2024Q3

REPORT INFORMATION
  Report Type: Spontaneous
  Country: EU (occurrence: EU)
  Receive Date: 20240710
  Receipt Date: 20240710
  Transmission Date: 20241016
  Serious: Yes (Other)
  Sender: ETHYPHARM
  Company Number: EU-ETHYPHARM-2024001113

PATIENT

DRUGS (12)
  1. BUPRENORPHINE HYDROCHLORIDE [Suspect]
     Active Substance: BUPRENORPHINE HYDROCHLORIDE
     Indication: Drug abuse
     Dosage: ONLY OROBUPRE OR MIX WITH BUPRENORPHINE
     Route: 048
  2. BUPRENORPHINE HYDROCHLORIDE [Suspect]
     Active Substance: BUPRENORPHINE HYDROCHLORIDE
     Indication: Drug abuse
     Dosage: ONLY OROBUPRE OR MIX WITH BUPRENORPHINE
     Route: 048
  3. BUPRENORPHINE HYDROCHLORIDE [Suspect]
     Active Substance: BUPRENORPHINE HYDROCHLORIDE
     Indication: Drug abuse
     Dosage: ONLY OROBUPRE OR MIX WITH BUPRENORPHINE
     Route: 048
  4. BUPRENORPHINE HYDROCHLORIDE [Suspect]
     Active Substance: BUPRENORPHINE HYDROCHLORIDE
     Indication: Drug abuse
     Dosage: ONLY OROBUPRE OR MIX WITH BUPRENORPHINE
     Route: 048
  5. BUPRENORPHINE HYDROCHLORIDE [Suspect]
     Active Substance: BUPRENORPHINE HYDROCHLORIDE
     Indication: Drug abuse
     Dosage: ONLY OROBUPRE OR MIX WITH BUPRENORPHINE
     Route: 048
  6. BUPRENORPHINE [Suspect]
     Active Substance: BUPRENORPHINE
     Indication: Drug abuse
  7. BUPRENORPHINE [Suspect]
     Active Substance: BUPRENORPHINE
     Indication: Drug abuse
     Dosage: ONLY BUPRENORPHINE OR MIX WITH OROBUPRE
     Route: 060
  8. BUPRENORPHINE [Suspect]
     Active Substance: BUPRENORPHINE
     Indication: Drug abuse
     Dosage: ONLY BUPRENORPHINE OR MIX WITH OROBUPRE
     Route: 060
  9. BUPRENORPHINE [Suspect]
     Active Substance: BUPRENORPHINE
     Indication: Drug abuse
     Dosage: ONLY BUPRENORPHINE OR MIX WITH OROBUPRE
     Route: 060
  10. BUPRENORPHINE [Suspect]
     Active Substance: BUPRENORPHINE
     Indication: Drug abuse
     Dosage: ONLY BUPRENORPHINE OR MIX WITH OROBUPRE
     Route: 060
  11. BUPRENORPHINE [Suspect]
     Active Substance: BUPRENORPHINE
     Indication: Drug abuse
     Dosage: ONLY BUPRENORPHINE OR MIX WITH OROBUPRE
     Route: 060
  12. LAMOTRIGINE [Concomitant]
     Active Substance: LAMOTRIGINE
     Indication: Product used for unknown indication

REACTIONS (7)
  - Drug tolerance [Unknown]
  - Drug abuse [Unknown]
  - Feeling of relaxation [Unknown]
  - Depression [Unknown]
  - Product administration interrupted [Unknown]
  - Drug dependence [Unknown]
  - Intentional product misuse [Unknown]
